FAERS Safety Report 12402000 (Version 2)
Quarter: 2016Q2

REPORT INFORMATION
  Report Type: Spontaneous
  Country: US (occurrence: US)
  Receive Date: 20160525
  Receipt Date: 20160527
  Transmission Date: 20160815
  Serious: No
  Sender: FDA-Public Use
  Company Number: US-SA-2015SA215335

PATIENT
  Age: 64 Year
  Sex: Female

DRUGS (4)
  1. LANTUS SOLOSTAR [Suspect]
     Active Substance: INSULIN GLARGINE
     Indication: TYPE 2 DIABETES MELLITUS
     Dosage: 10-12 UNITS
     Route: 065
     Dates: start: 201508, end: 20151026
  2. SOLOSTAR [Concomitant]
     Active Substance: DEVICE
     Indication: TYPE 2 DIABETES MELLITUS
     Dates: start: 201508, end: 20151026
  3. TOUJEO [Concomitant]
     Active Substance: INSULIN GLARGINE
     Dates: end: 201507
  4. SOLOSTAR [Concomitant]
     Active Substance: DEVICE
     Dates: end: 201507

REACTIONS (4)
  - Therapeutic response decreased [Unknown]
  - Visual impairment [Unknown]
  - Glycosylated haemoglobin increased [Unknown]
  - Drug dose omission [Unknown]

NARRATIVE: CASE EVENT DATE: 201509
